FAERS Safety Report 8396005-9 (Version None)
Quarter: 2012Q2

REPORT INFORMATION
  Report Type: 
  Country: None (occurrence: None)
  Receive Date: 20120530
  Receipt Date: 20120523
  Transmission Date: 20120825
  Serious: Yes (Other)
  Sender: FDA-Public Use
  Company Number: AR-ROCHE-1053015

PATIENT
  Sex: Male

DRUGS (1)
  1. LUCENTIS [Suspect]
     Indication: CATARACT
     Dates: start: 20111201

REACTIONS (2)
  - VISUAL ACUITY REDUCED [None]
  - DRUG INEFFECTIVE [None]
